FAERS Safety Report 6039447-9 (Version None)
Quarter: 2009Q1

REPORT INFORMATION
  Report Type: 
  Country: None (occurrence: None)
  Receive Date: 20090106
  Receipt Date: 20081009
  Transmission Date: 20090719
  Serious: Yes (Hospitalization)
  Sender: FDA-Public Use
  Company Number: AECAN200800247

PATIENT
  Age: 53 Year
  Sex: Male

DRUGS (5)
  1. GAMUNEX [Suspect]
     Indication: IMMUNODEFICIENCY
     Dosage: 40 ML;TOTAL; IV
     Route: 042
     Dates: start: 20080602
  2. CITALOPRAM HYDROBROMIDE [Concomitant]
  3. FERROUS GLUCONATE [Concomitant]
  4. TYLENOL W/ CODEINE [Concomitant]
  5. TWINRIX /01496501/ [Concomitant]

REACTIONS (1)
  - HYPERSENSITIVITY [None]
